FAERS Safety Report 7464567-1 (Version None)
Quarter: 2011Q2

REPORT INFORMATION
  Report Type: 
  Country: None (occurrence: None)
  Receive Date: 20110509
  Receipt Date: 20110505
  Transmission Date: 20111010
  Serious: No
  Sender: FDA-Public Use
  Company Number: US-PFIZER INC-2011097347

PATIENT
  Sex: Female

DRUGS (2)
  1. EFFEXOR XR [Suspect]
     Dosage: 75 MG, UNK
  2. VENLAFAXINE HCL [Suspect]
     Dosage: 37.5 MG, UNK

REACTIONS (2)
  - INSOMNIA [None]
  - HYPERSOMNIA [None]
